FAERS Safety Report 7633487-1 (Version None)
Quarter: 2011Q3

REPORT INFORMATION
  Report Type: 
  Country: None (occurrence: None)
  Receive Date: 20110725
  Receipt Date: 20110425
  Transmission Date: 20111222
  Serious: No
  Sender: FDA-Public Use
  Company Number: US-BRISTOL-MYERS SQUIBB COMPANY-15694409

PATIENT
  Age: 74 Year
  Sex: Female

DRUGS (2)
  1. VITAMIN TAB [Concomitant]
  2. SPRYCEL [Suspect]
     Dosage: FOR 5 MONTHS

REACTIONS (1)
  - PAIN IN EXTREMITY [None]
